FAERS Safety Report 6016553-6 (Version None)
Quarter: 2008Q4

REPORT INFORMATION
  Report Type: 
  Country: None (occurrence: None)
  Receive Date: 20081222
  Receipt Date: 20081215
  Transmission Date: 20090506
  Serious: Yes (Other)
  Sender: FDA-Public Use
  Company Number: JP-ASTRAZENECA-2008AP09780

PATIENT
  Age: 35 Year
  Sex: Female

DRUGS (5)
  1. ANAPEINE INJECTION [Suspect]
     Indication: EPIDURAL ANAESTHESIA
     Dosage: 0.2% 95 ML WAS ADMINISTERED AT 3 ML/H.
     Route: 008
     Dates: start: 20081213, end: 20081214
  2. ANAPEINE INJECTION [Suspect]
     Dosage: 0.2% 95 ML WAS ADMINISTERED AT 5 ML/H.
     Route: 008
     Dates: start: 20081214, end: 20081214
  3. MARCAINE [Suspect]
     Indication: SPINAL ANAESTHESIA
     Dosage: INJECTION 0.5% HYPERBARIC
     Route: 029
     Dates: start: 20081212, end: 20081212
  4. FENTANYL-100 [Concomitant]
     Indication: EPIDURAL ANAESTHESIA
     Dosage: 50 MICROGRAM AT 3ML/H
     Route: 008
     Dates: start: 20081213, end: 20081214
  5. FENTANYL-100 [Concomitant]
     Dosage: 50 MICROGRAM AT 5ML/H
     Route: 008
     Dates: start: 20081214, end: 20081214

REACTIONS (2)
  - ANAESTHETIC COMPLICATION [None]
  - DRUG TOXICITY [None]
